FAERS Safety Report 5829120-1 (Version None)
Quarter: 2008Q2

REPORT INFORMATION
  Report Type: 
  Country: None (occurrence: None)
  Receive Date: 20080601
  Receipt Date: 20080213
  Transmission Date: 20081010
  Serious: No
  Sender: FDA-Public Use
  Company Number: US200802003243

PATIENT
  Age: 69 Year
  Sex: Female
  Weight: 95.2 kg

DRUGS (4)
  1. BYETTA [Suspect]
     Indication: TYPE 2 DIABETES MELLITUS
     Dosage: 10 UG, 2/D, SUBCUTANEOUS
     Route: 058
     Dates: start: 20060101
  2. HUMULIN R [Concomitant]
  3. LEVEMIR (INSULIN DETEMIR) [Concomitant]
  4. ASPIRIN /USA/ (ACETYLSALICYLIC ACID) [Concomitant]

REACTIONS (2)
  - INJECTION SITE HAEMORRHAGE [None]
  - SINUSITIS [None]
